FAERS Safety Report 15121859 (Version 1)
Quarter: 2018Q3

REPORT INFORMATION
  Report Type: Spontaneous
  Country: US (occurrence: US)
  Receive Date: 20180613
  Receipt Date: 20180613
  Transmission Date: 20181010
  Serious: No
  Sender: FDA-Public Use
  Company Number: None

PATIENT
  Age: 6 Month
  Sex: Male

DRUGS (1)
  1. ACTHAR [Suspect]
     Active Substance: CORTICOTROPIN
     Dates: start: 20180606, end: 20180613

REACTIONS (3)
  - Irritability [None]
  - Cushingoid [None]
  - Somnolence [None]

NARRATIVE: CASE EVENT DATE: 20180613
